FAERS Safety Report 15646893 (Version 1)
Quarter: 2018Q4

REPORT INFORMATION
  Report Type: Other
  Country: TR (occurrence: TR)
  Receive Date: 20181122
  Receipt Date: 20181122
  Transmission Date: 20190205
  Serious: Yes (Hospitalization, Other)
  Sender: FDA-Public Use
  Company Number: TR-ORCHID HEALTHCARE-2059190

PATIENT
  Age: 30 Year
  Sex: Female

DRUGS (1)
  1. OLANZAPINE. [Suspect]
     Active Substance: OLANZAPINE
     Route: 065

REACTIONS (12)
  - PCO2 decreased [Recovering/Resolving]
  - Respiratory rate increased [Recovering/Resolving]
  - Antipsychotic drug level above therapeutic [Recovered/Resolved]
  - Toxicity to various agents [Recovered/Resolved]
  - Overdose [Recovered/Resolved]
  - Blood pressure decreased [Recovering/Resolving]
  - Suicide attempt [Unknown]
  - Depressed level of consciousness [Recovering/Resolving]
  - Tachycardia [Recovering/Resolving]
  - Agitation [Recovering/Resolving]
  - Heart rate increased [Recovering/Resolving]
  - Coma scale abnormal [Recovering/Resolving]
